FAERS Safety Report 23066324 (Version 1)
Quarter: 2023Q4

REPORT INFORMATION
  Report Type: Spontaneous
  Country: CA (occurrence: CA)
  Receive Date: 20231015
  Receipt Date: 20231015
  Transmission Date: 20240110
  Serious: Yes (Other)
  Sender: FDA-Public Use
  Company Number: None

PATIENT
  Age: 73 Year
  Sex: Female

DRUGS (20)
  1. METHOTREXATE SODIUM [Suspect]
     Active Substance: METHOTREXATE SODIUM
     Indication: Psoriatic arthropathy
     Dosage: 1 EVERY 1 WEEKS
     Route: 065
  2. AMLODIPINE [Concomitant]
     Active Substance: AMLODIPINE BESYLATE
  3. ASPIRIN [Concomitant]
     Active Substance: ASPIRIN
  4. BISOPROLOL [Concomitant]
     Active Substance: BISOPROLOL\BISOPROLOL FUMARATE
  5. DEXLANSOPRAZOLE [Concomitant]
     Active Substance: DEXLANSOPRAZOLE
     Dosage: CAPSULE DELAYED RELEASE
  6. FAMOTIDINE [Concomitant]
     Active Substance: FAMOTIDINE
  7. FLOVENT [Concomitant]
     Active Substance: FLUTICASONE PROPIONATE
  8. FOLIC ACID [Concomitant]
     Active Substance: FOLIC ACID
  9. GLICLAZIDE [Concomitant]
     Active Substance: GLICLAZIDE
  10. ISOSORBIDE MONONITRATE [Concomitant]
     Active Substance: ISOSORBIDE MONONITRATE
  11. JANUVIA [Concomitant]
     Active Substance: SITAGLIPTIN PHOSPHATE
  12. LASIX [Concomitant]
     Active Substance: FUROSEMIDE
  13. LIPITOR [Concomitant]
     Active Substance: ATORVASTATIN CALCIUM
  14. PRAMIPEXOLE [Concomitant]
     Active Substance: PRAMIPEXOLE
  15. SYNTHROID [Concomitant]
     Active Substance: LEVOTHYROXINE SODIUM
  16. TOLTERODINE [Concomitant]
     Active Substance: TOLTERODINE
  17. VALSARTAN [Concomitant]
     Active Substance: VALSARTAN
  18. VENTOLIN [Concomitant]
     Active Substance: ALBUTEROL SULFATE
  19. VITAMIN B12 [Concomitant]
     Active Substance: CYANOCOBALAMIN
  20. METHOTREXATE SODIUM [Suspect]
     Active Substance: METHOTREXATE SODIUM
     Indication: Psoriatic arthropathy
     Dosage: 1 EVERY 1 WEEKS, THERAPY DURATION: -15
     Route: 065

REACTIONS (4)
  - Alanine aminotransferase increased [Not Recovered/Not Resolved]
  - Drug ineffective [Not Recovered/Not Resolved]
  - Synovitis [Not Recovered/Not Resolved]
  - Pain in extremity [Not Recovered/Not Resolved]
